FAERS Safety Report 8537743 (Version 2)
Quarter: 2012Q4

REPORT INFORMATION
  Report Type: 
  Country: US (occurrence: US)
  Receive Date: 20120501
  Receipt Date: 20120911
  Transmission Date: 20130627
  Serious: Yes (Other)
  Sender: FDA-Public Use
  Company Number: US-B.I. PHARMACEUTICALS,INC./RIDGEFIELD-2012-BP-09682BP

PATIENT
  Age: 62 None
  Sex: Female

DRUGS (7)
  1. SPIRIVA HANDIHALER [Suspect]
     Indication: CHRONIC OBSTRUCTIVE PULMONARY DISEASE
     Dosage: 18 mcg
     Route: 055
     Dates: start: 2009
  2. AMBIEN [Concomitant]
     Indication: INSOMNIA
     Dosage: 10 mg
     Route: 048
  3. BENADRYL [Concomitant]
     Indication: INSOMNIA
     Dosage: 75 mg
     Route: 048
  4. EFFEXOR [Concomitant]
     Indication: ANXIETY
     Dosage: 300 mg
     Route: 048
  5. ORAL MAGIC MOUTH WASH [Concomitant]
     Indication: ORAL PAIN
     Route: 048
  6. PERCOCET [Concomitant]
     Indication: PAIN
     Route: 048
  7. XANAX [Concomitant]
     Indication: ANXIETY
     Dosage: 3 mg
     Route: 048

REACTIONS (1)
  - Lung neoplasm malignant [Not Recovered/Not Resolved]
